FAERS Safety Report 21870551 (Version 6)
Quarter: 2023Q1

REPORT INFORMATION
  Report Type: Report from Study
  Country: CA (occurrence: CA)
  Receive Date: 20230117
  Receipt Date: 20230308
  Transmission Date: 20230418
  Serious: Yes (Hospitalization)
  Sender: FDA-Public Use
  Company Number: CA-JNJFOC-20221236740

PATIENT
  Age: 7 Year
  Sex: Female
  Weight: 23 kg

DRUGS (5)
  1. REMICADE [Suspect]
     Active Substance: INFLIXIMAB
     Indication: Crohn^s disease
     Dosage: THERAPY GIVEN ON 11-MAY-2022. EXPIRY: 31-JUL-2025. ON 08-FEB-2023, PATIENT RECEIVED 09TH INFLIXIMAB
     Route: 041
     Dates: start: 20220427
  2. REMICADE [Suspect]
     Active Substance: INFLIXIMAB
     Dosage: RELOAD DOSE. PATIENT NEED RELOAD DOSE. COULD SHE GO WEDNESDAY, THEN ANOTHER IN 2 WEEKS, THEN ANOTHER
     Route: 041
  3. REMICADE [Suspect]
     Active Substance: INFLIXIMAB
     Route: 042
  4. HYDROCORTISONE [Concomitant]
     Active Substance: HYDROCORTISONE
     Indication: Premedication
     Route: 042
  5. BENADRYL [Concomitant]
     Active Substance: DIPHENHYDRAMINE HYDROCHLORIDE
     Indication: Premedication
     Route: 065

REACTIONS (8)
  - Osteomyelitis [Recovered/Resolved]
  - Drug specific antibody present [Unknown]
  - Drug level below therapeutic [Unknown]
  - General physical health deterioration [Unknown]
  - Vomiting [Not Recovered/Not Resolved]
  - Abdominal pain [Not Recovered/Not Resolved]
  - Diarrhoea [Not Recovered/Not Resolved]
  - Off label use [Unknown]

NARRATIVE: CASE EVENT DATE: 20220101
